FAERS Safety Report 7079691-5 (Version None)
Quarter: 2010Q4

REPORT INFORMATION
  Report Type: 
  Country: None (occurrence: None)
  Receive Date: 20101102
  Receipt Date: 20101026
  Transmission Date: 20110411
  Serious: Yes (Life-Threatening, Hospitalization)
  Sender: FDA-Public Use
  Company Number: PHHY2010FR72790

PATIENT
  Sex: Male

DRUGS (5)
  1. TEGRETOL [Suspect]
     Dosage: 200 MG/DAY
     Route: 064
     Dates: start: 20070101
  2. ESCITALOPRAM OXALATE [Suspect]
     Dosage: 5 MG/DAY
     Route: 064
     Dates: start: 20070101
  3. TRANXENE [Suspect]
     Dosage: 15 MG/DAY
     Route: 064
     Dates: start: 20070101
  4. TERCIAN [Suspect]
     Dosage: 90 MG/ML DAILY
     Route: 064
     Dates: start: 20070101
  5. HALDOL [Suspect]
     Dosage: 5 MG/DAY
     Route: 064
     Dates: start: 20080222

REACTIONS (8)
  - APPARENT DEATH [None]
  - DRUG EXPOSURE DURING PREGNANCY [None]
  - FOETAL ARRHYTHMIA [None]
  - FOETAL DISTRESS SYNDROME [None]
  - JAUNDICE NEONATAL [None]
  - NEONATAL RESPIRATORY DISTRESS SYNDROME [None]
  - PREMATURE BABY [None]
  - RESPIRATORY DISTRESS [None]
